FAERS Safety Report 5926583-8 (Version None)
Quarter: 2008Q4

REPORT INFORMATION
  Report Type: 
  Country: None (occurrence: None)
  Receive Date: 20081022
  Receipt Date: 20081017
  Transmission Date: 20090506
  Serious: Yes (Life-Threatening)
  Sender: FDA-Public Use
  Company Number: JP-BAYER-200710773BYL

PATIENT
  Age: 72 Year
  Sex: Male
  Weight: 65 kg

DRUGS (1)
  1. ADALAT [Suspect]
     Indication: HYPERTENSION
     Dosage: UNIT DOSE: 5 MG
     Route: 048
     Dates: start: 20071014, end: 20071014

REACTIONS (3)
  - ALTERED STATE OF CONSCIOUSNESS [None]
  - COLD SWEAT [None]
  - GLOSSOPTOSIS [None]
